FAERS Safety Report 7408383-5 (Version None)
Quarter: 2011Q2

REPORT INFORMATION
  Report Type: 
  Country: None (occurrence: None)
  Receive Date: 20110412
  Receipt Date: 20110329
  Transmission Date: 20111010
  Serious: Yes (Other)
  Sender: FDA-Public Use
  Company Number: FR-JNJFOC-20110400378

PATIENT
  Age: 57 Year
  Sex: Female
  Weight: 55 kg

DRUGS (6)
  1. STEROIDS NOS [Suspect]
     Indication: CROHN'S DISEASE
     Dosage: ON 0 DAY
  2. AZATHIOPRINE [Suspect]
     Indication: CROHN'S DISEASE
  3. ADALIMUMAB [Suspect]
     Route: 058
  4. INFLIXIMAB, RECOMBINANT [Suspect]
     Indication: CROHN'S DISEASE
     Route: 042
  5. ADALIMUMAB [Suspect]
     Indication: CROHN'S DISEASE
     Dosage: ON 14TH DAY
     Route: 058
  6. ADALIMUMAB [Suspect]
     Dosage: ON 0 DAY
     Route: 058

REACTIONS (2)
  - SQUAMOUS CELL CARCINOMA [None]
  - CROHN'S DISEASE [None]
